FAERS Safety Report 5706318-4 (Version None)
Quarter: 2008Q2

REPORT INFORMATION
  Report Type: 
  Country: None (occurrence: None)
  Receive Date: 20080328
  Receipt Date: 20070823
  Transmission Date: 20081010
  Serious: Yes (Other)
  Sender: FDA-Public Use
  Company Number: HQWYE836427AUG07

PATIENT
  Age: 66 Year
  Sex: Female
  Weight: 89.89 kg

DRUGS (6)
  1. ALAVERT [Suspect]
     Indication: LACRIMATION INCREASED
     Dosage: 1 TABLET 1X PER 1 DAY, ORAL
     Route: 048
  2. LUMIGAN [Concomitant]
  3. SYNTHROID [Concomitant]
  4. LIPITOR [Concomitant]
  5. SINGULAIR [Concomitant]
  6. PULMICORT [Concomitant]

REACTIONS (1)
  - INSOMNIA [None]
